FAERS Safety Report 8446220-0 (Version None)
Quarter: 2012Q2

REPORT INFORMATION
  Report Type: 
  Country: None (occurrence: None)
  Receive Date: 20120618
  Receipt Date: 20120607
  Transmission Date: 20120825
  Serious: No
  Sender: FDA-Public Use
  Company Number: US-B.I. PHARMACEUTICALS,INC./RIDGEFIELD-2012-BP-13232BP

PATIENT
  Sex: Female

DRUGS (12)
  1. MELOXICAM [Concomitant]
     Indication: ARTHRITIS
     Dosage: 15 MG
     Route: 048
     Dates: start: 19990101
  2. CALCIUM [Concomitant]
     Indication: SUPPLEMENTATION THERAPY
     Dosage: 1000 MG
     Route: 048
     Dates: start: 19970101
  3. COMBIVENT [Concomitant]
     Indication: CHRONIC OBSTRUCTIVE PULMONARY DISEASE
     Dosage: 2 PUF
     Route: 055
     Dates: start: 20110101
  4. ACETAMINOPHEN [Concomitant]
     Indication: PAIN
     Dates: start: 20020101
  5. SPIRIVA [Suspect]
     Indication: CHRONIC OBSTRUCTIVE PULMONARY DISEASE
     Dosage: 18 MCG
     Route: 055
     Dates: start: 20120522
  6. SPIRIVA [Suspect]
     Indication: EMPHYSEMA
  7. VITAMIN D [Concomitant]
     Indication: SUPPLEMENTATION THERAPY
     Dosage: 2000 U
     Route: 048
     Dates: start: 20080101
  8. COMBIVENT [Concomitant]
     Indication: EMPHYSEMA
  9. LASIX [Concomitant]
     Indication: CARDIAC FAILURE CONGESTIVE
     Dosage: 40 MG
     Route: 048
     Dates: start: 20070101
  10. AMBIEN [Concomitant]
     Indication: INSOMNIA
     Dates: start: 20120101
  11. LOSARTAN POTASSIUM [Concomitant]
     Indication: HYPERTENSION
     Dosage: 100 MG
     Route: 048
     Dates: start: 20020101
  12. OMEPRAZOLE [Concomitant]
     Indication: GASTROOESOPHAGEAL REFLUX DISEASE
     Dosage: 80 MG
     Route: 048
     Dates: start: 20020101

REACTIONS (1)
  - CHEST DISCOMFORT [None]
